FAERS Safety Report 9291533 (Version 2)
Quarter: 2013Q2

REPORT INFORMATION
  Report Type: Spontaneous
  Country: US (occurrence: US)
  Receive Date: 20130515
  Receipt Date: 20130618
  Transmission Date: 20140414
  Serious: Yes (Life-Threatening, Other)
  Sender: FDA-Public Use
  Company Number: US-GLAXOSMITHKLINE-A1023413A

PATIENT
  Age: 71 Year
  Sex: Female
  Weight: 86.4 kg

DRUGS (20)
  1. SORIATANE [Suspect]
     Indication: LICHEN PLANUS
     Dosage: 25MG PER DAY
     Route: 048
     Dates: start: 20130401, end: 20130512
  2. DILTIAZEM [Concomitant]
  3. ZEGERID [Concomitant]
  4. LEVOTHYROXINE [Concomitant]
  5. TAGAMET [Concomitant]
  6. ASPIRIN [Concomitant]
  7. CITALOPRAM [Concomitant]
  8. PRESERVISION [Concomitant]
  9. BEPREVE [Concomitant]
  10. PROBIOTICS [Concomitant]
  11. CALCIUM [Concomitant]
  12. VITAMIN D3 [Concomitant]
  13. BIOTIN [Concomitant]
  14. XANAX [Concomitant]
  15. ZYLOPRIM [Concomitant]
  16. AZELASTINE [Concomitant]
  17. PROTOPIC OINTMENT [Concomitant]
  18. METRONIDAZOLE [Concomitant]
  19. FLUOCINONIDE [Concomitant]
  20. FLUOROMETHOLONE [Concomitant]

REACTIONS (14)
  - Hypertension [Not Recovered/Not Resolved]
  - Weight increased [Unknown]
  - Blood triglycerides increased [Unknown]
  - Blood cholesterol increased [Unknown]
  - Oedema peripheral [Unknown]
  - Erythema [Unknown]
  - Alopecia [Unknown]
  - Onychoclasis [Unknown]
  - Vulvovaginal pruritus [Unknown]
  - Vulvovaginal burning sensation [Unknown]
  - Urine output decreased [Unknown]
  - Fluid retention [Recovering/Resolving]
  - Heart rate increased [Unknown]
  - Therapeutic response unexpected [Unknown]
